FAERS Safety Report 24726200 (Version 1)
Quarter: 2024Q4

REPORT INFORMATION
  Report Type: Spontaneous
  Country: US (occurrence: None)
  Receive Date: 20241211
  Receipt Date: 20241211
  Transmission Date: 20250115
  Serious: No
  Sender: Public
  Company Number: None

PATIENT
  Age: 92 Year
  Sex: Male
  Weight: 74 kg

DRUGS (1)
  1. CEFEPIME HYDROCHLORIDE [Suspect]
     Active Substance: CEFEPIME HYDROCHLORIDE
     Indication: Urinary tract infection
     Dosage: OTHER FREQUENCY : ONCE;?
     Route: 042
     Dates: start: 20231031, end: 20231031

REACTIONS (2)
  - Angioedema [None]
  - Rash pruritic [None]

NARRATIVE: CASE EVENT DATE: 20231031
